FAERS Safety Report 5522228-X (Version None)
Quarter: 2007Q4

REPORT INFORMATION
  Report Type: 
  Country: None (occurrence: None)
  Receive Date: 20071120
  Receipt Date: 20071116
  Transmission Date: 20080405
  Serious: Yes (Hospitalization)
  Sender: FDA-Public Use
  Company Number: US-ELI_LILLY_AND_COMPANY-US200710007395

PATIENT
  Sex: Male
  Weight: 57.4 kg

DRUGS (1)
  1. SOMATROPIN [Suspect]
     Dosage: 2.8 MG, DAILY (1/D)
     Route: 058
     Dates: start: 20070129

REACTIONS (1)
  - EPIPHYSIOLYSIS [None]
